FAERS Safety Report 13878608 (Version 1)
Quarter: 2017Q3

REPORT INFORMATION
  Report Type: Spontaneous
  Country: US (occurrence: US)
  Receive Date: 20170817
  Receipt Date: 20170817
  Transmission Date: 20171127
  Serious: Yes (Other)
  Sender: FDA-Public Use
  Company Number: US-IMPAX LABORATORIES, INC-2017-IPXL-02413

PATIENT
  Age: 79 Year
  Sex: Female

DRUGS (3)
  1. DOPAMINE [Suspect]
     Active Substance: DOPAMINE\DOPAMINE HYDROCHLORIDE
     Indication: HYPOTENSION
     Dosage: 20 ?G/KG/MIN
     Route: 065
  2. NOREPINEPHRINE. [Suspect]
     Active Substance: NOREPINEPHRINE
     Indication: HYPOTENSION
     Dosage: CONTINUOUS INFUSIONS OF HIGH-DOSE  3 ?G/KG/MIN
     Route: 065
  3. ADRENACLICK [Suspect]
     Active Substance: EPINEPHRINE
     Indication: CARDIAC ARREST
     Dosage: 1 MG, UNK
     Route: 042

REACTIONS (1)
  - Stress cardiomyopathy [Recovered/Resolved]
